FAERS Safety Report 14913429 (Version 1)
Quarter: 2018Q2

REPORT INFORMATION
  Report Type: Spontaneous
  Country: CZ (occurrence: CZ)
  Receive Date: 20180518
  Receipt Date: 20180518
  Transmission Date: 20180711
  Serious: Yes (Death)
  Sender: FDA-Public Use
  Company Number: CZ-FRESENIUS KABI-FK201805860

PATIENT
  Age: 53 Year
  Sex: Male

DRUGS (2)
  1. CISPLATIN (MANUFACTURER UNKNOWN) [Suspect]
     Active Substance: CISPLATIN
     Indication: DISEASE PROGRESSION
     Route: 065
     Dates: start: 201605
  2. PEMETREXED (MANUFACTURER UNKNOWN) [Suspect]
     Active Substance: PEMETREXED
     Indication: DISEASE PROGRESSION
     Route: 065
     Dates: start: 201605

REACTIONS (1)
  - Disease progression [Fatal]
